FAERS Safety Report 22136887 (Version 2)
Quarter: 2023Q2

REPORT INFORMATION
  Report Type: Report from Study
  Country: CA (occurrence: CA)
  Receive Date: 20230324
  Receipt Date: 20230509
  Transmission Date: 20230721
  Serious: Yes (Hospitalization, Other)
  Sender: FDA-Public Use
  Company Number: CA-KOREA IPSEN Pharma-2023-02949

PATIENT
  Age: 70 Year
  Sex: Female

DRUGS (1)
  1. LANREOTIDE ACETATE [Suspect]
     Active Substance: LANREOTIDE ACETATE
     Indication: Neuroendocrine tumour
     Route: 058
     Dates: start: 20171124

REACTIONS (9)
  - Hospitalisation [Unknown]
  - Loss of consciousness [Unknown]
  - Vomiting [Unknown]
  - Transfusion [Unknown]
  - Palliative care [Unknown]
  - Malaise [Unknown]
  - Abdominal cavity drainage [Unknown]
  - Pallor [Unknown]
  - Off label use [Unknown]

NARRATIVE: CASE EVENT DATE: 20230101
